FAERS Safety Report 5592615-2 (Version None)
Quarter: 2007Q4

REPORT INFORMATION
  Report Type: 
  Country: None (occurrence: None)
  Receive Date: 20071218
  Receipt Date: 20061229
  Transmission Date: 20080405
  Serious: Yes (Hospitalization, Other)
  Sender: FDA-Public Use
  Company Number: 2005075275

PATIENT
  Age: 63 Year
  Sex: Male
  Weight: 113.4 kg

DRUGS (11)
  1. BEXTRA [Suspect]
     Indication: INFLAMMATION
     Dosage: 20 MG (10 MG,2 IN 1 D)
     Dates: start: 20021001
  2. BEXTRA [Suspect]
     Indication: OSTEOARTHRITIS
     Dosage: 20 MG (10 MG,2 IN 1 D)
     Dates: start: 20021001
  3. BEXTRA [Suspect]
     Indication: PAIN
     Dosage: 20 MG (10 MG,2 IN 1 D)
     Dates: start: 20021001
  4. VIOXX [Concomitant]
  5. ACETAMINOPHEN [Concomitant]
  6. PERCOCET [Concomitant]
  7. MORPHINE [Concomitant]
  8. DARVOCET [Concomitant]
  9. CELEBREX [Concomitant]
  10. ASPIRIN [Concomitant]
  11. ALEVE [Concomitant]

REACTIONS (1)
  - MYOCARDIAL INFARCTION [None]
